FAERS Safety Report 18607630 (Version 2)
Quarter: 2021Q1

REPORT INFORMATION
  Report Type: Report from Study
  Country: US (occurrence: US)
  Receive Date: 20201211
  Receipt Date: 20210104
  Transmission Date: 20210419
  Serious: Yes (Hospitalization)
  Sender: FDA-Public Use
  Company Number: US-EXELIXIS-XL18420035745

PATIENT
  Age: 90 Year
  Sex: Female
  Weight: 54.99 kg

DRUGS (22)
  1. DOCUSATE SODIUM. [Concomitant]
     Active Substance: DOCUSATE SODIUM
  2. TRAVATAN [Concomitant]
     Active Substance: TRAVOPROST
  3. IMODIUM [Concomitant]
     Active Substance: LOPERAMIDE HYDROCHLORIDE
  4. CLOBETASOL [Concomitant]
     Active Substance: CLOBETASOL
  5. TAMSULOSIN [Concomitant]
     Active Substance: TAMSULOSIN
  6. NACL [Concomitant]
     Active Substance: SODIUM CHLORIDE
  7. PANTOPRAZOLE [Concomitant]
     Active Substance: PANTOPRAZOLE
  8. CYCLOBENZAPRINE. [Concomitant]
     Active Substance: CYCLOBENZAPRINE
  9. SENNA [Concomitant]
     Active Substance: SENNA LEAF\SENNOSIDES\SENNOSIDES A AND B
  10. CEFTRIAXONE. [Concomitant]
     Active Substance: CEFTRIAXONE
  11. ATENOLOL. [Concomitant]
     Active Substance: ATENOLOL
  12. CALCIUM +D [Concomitant]
     Active Substance: CALCIUM\VITAMIN D
  13. ELIQUIS [Concomitant]
     Active Substance: APIXABAN
  14. TRAMADOL. [Concomitant]
     Active Substance: TRAMADOL
  15. MORPHINE [Concomitant]
     Active Substance: MORPHINE
  16. XL184 [Suspect]
     Active Substance: CABOZANTINIB
     Indication: NON-SMALL CELL LUNG CANCER
     Dosage: 40 MG, QD
     Route: 048
     Dates: start: 20200816
  17. ATEZOLIZUMAB. [Suspect]
     Active Substance: ATEZOLIZUMAB
     Indication: NON-SMALL CELL LUNG CANCER
     Dosage: 1200 MG, Q3WEEKS
     Route: 042
     Dates: start: 20190816, end: 20201030
  18. LORAZEPAM. [Concomitant]
     Active Substance: LORAZEPAM
  19. TYLENOL [Concomitant]
     Active Substance: ACETAMINOPHEN
  20. ONDANSETRON [Concomitant]
     Active Substance: ONDANSETRON
  21. XL184 [Suspect]
     Active Substance: CABOZANTINIB
     Dosage: 20 MG, QD
     Route: 048
     Dates: end: 20201109
  22. LASIX [Concomitant]
     Active Substance: FUROSEMIDE

REACTIONS (1)
  - Failure to thrive [Not Recovered/Not Resolved]

NARRATIVE: CASE EVENT DATE: 20201117
